FAERS Safety Report 16420176 (Version 1)
Quarter: 2019Q2

REPORT INFORMATION
  Report Type: Spontaneous
  Country: IT (occurrence: IT)
  Receive Date: 20190612
  Receipt Date: 20190612
  Transmission Date: 20190711
  Serious: Yes (Hospitalization)
  Sender: FDA-Public Use
  Company Number: PHHY2019IT095115

PATIENT
  Age: 43 Year
  Sex: Male

DRUGS (3)
  1. TACHIPIRINA [Suspect]
     Active Substance: ACETAMINOPHEN
     Indication: ANTIINFLAMMATORY THERAPY
     Dosage: 1 DF, UNK
     Route: 048
  2. PARACETAMOL [Suspect]
     Active Substance: ACETAMINOPHEN
     Indication: TOOTHACHE
     Dosage: 1 DF, QD
     Route: 048
  3. NIMESULIDE [Suspect]
     Active Substance: NIMESULIDE
     Indication: TOOTHACHE
     Dosage: 2 DF, QD
     Route: 048

REACTIONS (6)
  - Melaena [Not Recovered/Not Resolved]
  - Duodenal ulcer [Not Recovered/Not Resolved]
  - Gastritis [Not Recovered/Not Resolved]
  - Erosive duodenitis [Not Recovered/Not Resolved]
  - Gastrointestinal haemorrhage [Not Recovered/Not Resolved]
  - Rectal haemorrhage [Recovering/Resolving]

NARRATIVE: CASE EVENT DATE: 20190401
